FAERS Safety Report 9252019 (Version 5)
Quarter: 2017Q2

REPORT INFORMATION
  Report Type: Spontaneous
  Country: US (occurrence: US)
  Receive Date: 20130424
  Receipt Date: 20170407
  Transmission Date: 20170830
  Serious: Yes (Disabling, Other)
  Sender: FDA-Public Use
  Company Number: US-ASTRAZENECA-2013SE27364

PATIENT
  Age: 46 Year
  Sex: Female
  Weight: 127 kg

DRUGS (42)
  1. NEXIUM [Suspect]
     Active Substance: ESOMEPRAZOLE MAGNESIUM
     Indication: VOCAL CORD THICKENING
     Dosage: 40.0MG UNKNOWN
     Route: 048
     Dates: start: 20050210
  2. PEPCID [Concomitant]
     Active Substance: FAMOTIDINE
  3. XENICAL [Concomitant]
     Active Substance: ORLISTAT
     Dates: start: 20060822
  4. CLARINEX [Concomitant]
     Active Substance: DESLORATADINE
     Dates: start: 20030531
  5. ALLOPURINOL. [Concomitant]
     Active Substance: ALLOPURINOL
  6. ALLEGRA [Concomitant]
     Active Substance: FEXOFENADINE HYDROCHLORIDE
  7. NEXIUM [Suspect]
     Active Substance: ESOMEPRAZOLE MAGNESIUM
     Indication: VOCAL CORD THICKENING
     Dosage: 40.0MG UNKNOWN
     Route: 048
     Dates: start: 2016
  8. PRILOSEC [Suspect]
     Active Substance: OMEPRAZOLE MAGNESIUM
     Indication: GASTROOESOPHAGEAL REFLUX DISEASE
     Route: 048
  9. ZAROXOLYN [Concomitant]
     Active Substance: METOLAZONE
     Dates: start: 20050701
  10. TOPAMAX [Concomitant]
     Active Substance: TOPIRAMATE
     Dates: start: 20080521
  11. NEXIUM [Suspect]
     Active Substance: ESOMEPRAZOLE MAGNESIUM
     Indication: GASTROOESOPHAGEAL REFLUX DISEASE
     Dosage: 40.0MG UNKNOWN
     Route: 048
     Dates: start: 20050210
  12. NEXIUM [Suspect]
     Active Substance: ESOMEPRAZOLE MAGNESIUM
     Indication: GASTROOESOPHAGEAL REFLUX DISEASE
     Dosage: 40.0MG UNKNOWN
     Route: 048
     Dates: start: 2016
  13. PREVACID [Concomitant]
     Active Substance: LANSOPRAZOLE
     Indication: GASTROOESOPHAGEAL REFLUX DISEASE
  14. INDERAL [Concomitant]
     Active Substance: PROPRANOLOL HYDROCHLORIDE
     Dates: start: 20050701
  15. GLUCOPHAGE [Concomitant]
     Active Substance: METFORMIN HYDROCHLORIDE
     Dates: start: 20050701
  16. LIALDA [Concomitant]
     Active Substance: MESALAMINE
     Route: 048
     Dates: start: 20080414
  17. NEXIUM [Suspect]
     Active Substance: ESOMEPRAZOLE MAGNESIUM
     Indication: VOCAL CORD THICKENING
     Dosage: 40.0MG UNKNOWN
     Route: 048
     Dates: start: 2016
  18. NEXIUM [Suspect]
     Active Substance: ESOMEPRAZOLE MAGNESIUM
     Indication: GASTROOESOPHAGEAL REFLUX DISEASE
     Dosage: 40.0MG UNKNOWN
     Route: 048
     Dates: start: 2016
  19. ADIPEX-P [Concomitant]
     Active Substance: PHENTERMINE HYDROCHLORIDE
     Dates: start: 20060822
  20. FLEXERIL [Concomitant]
     Active Substance: CYCLOBENZAPRINE HYDROCHLORIDE
     Dates: start: 20021031
  21. AMBIEN [Concomitant]
     Active Substance: ZOLPIDEM TARTRATE
  22. ATENOLOL. [Concomitant]
     Active Substance: ATENOLOL
     Dates: start: 20090512
  23. NEXIUM [Suspect]
     Active Substance: ESOMEPRAZOLE MAGNESIUM
     Indication: VOCAL CORD THICKENING
     Route: 048
  24. NEXIUM [Suspect]
     Active Substance: ESOMEPRAZOLE MAGNESIUM
     Indication: GASTROOESOPHAGEAL REFLUX DISEASE
     Route: 048
  25. NEXIUM [Suspect]
     Active Substance: ESOMEPRAZOLE MAGNESIUM
     Indication: GASTROOESOPHAGEAL REFLUX DISEASE
     Dosage: 40.0MG UNKNOWN
     Route: 048
     Dates: start: 20110222
  26. SYNTHROID [Concomitant]
     Active Substance: LEVOTHYROXINE SODIUM
     Indication: THYROID DISORDER
     Dosage: 250 MICROGRAMS
  27. LASIX [Concomitant]
     Active Substance: FUROSEMIDE
     Dates: start: 20050701
  28. VIOXX [Concomitant]
     Active Substance: ROFECOXIB
     Dates: start: 20021217
  29. CYMBALTA [Concomitant]
     Active Substance: DULOXETINE HYDROCHLORIDE
     Dates: start: 20110909
  30. ACIPHEX [Concomitant]
     Active Substance: RABEPRAZOLE SODIUM
     Indication: GASTROOESOPHAGEAL REFLUX DISEASE
  31. TUMS [Concomitant]
     Active Substance: CALCIUM CARBONATE
     Dosage: AS NEEDED
  32. ZANTAC [Concomitant]
     Active Substance: RANITIDINE HYDROCHLORIDE
  33. PANTOPRAZOLE SODIUM. [Concomitant]
     Active Substance: PANTOPRAZOLE SODIUM
     Dates: start: 20090130
  34. CELEBREX [Concomitant]
     Active Substance: CELECOXIB
     Dates: start: 20090603
  35. MERIDIA [Concomitant]
     Active Substance: SIBUTRAMINE HYDROCHLORIDE
     Dates: start: 20040204
  36. NEXIUM [Suspect]
     Active Substance: ESOMEPRAZOLE MAGNESIUM
     Indication: VOCAL CORD THICKENING
     Dosage: 40.0MG UNKNOWN
     Route: 048
     Dates: start: 20110222
  37. BYDUREON [Suspect]
     Active Substance: EXENATIDE
     Indication: TYPE 2 DIABETES MELLITUS
     Route: 058
     Dates: start: 2016
  38. MYLANTA [Concomitant]
     Active Substance: ALUMINUM HYDROXIDE\DIMETHICONE\MAGNESIUM HYDROXIDE
  39. K-DUR [Concomitant]
     Active Substance: POTASSIUM CHLORIDE
     Dates: start: 20050701
  40. LISINOPRIL. [Concomitant]
     Active Substance: LISINOPRIL
  41. HYDROCHLOROTHIAZIDE. [Concomitant]
     Active Substance: HYDROCHLOROTHIAZIDE
     Dates: start: 20090330
  42. SERTRALINE HYDROCHLORIDE. [Concomitant]
     Active Substance: SERTRALINE HYDROCHLORIDE

REACTIONS (22)
  - Weight increased [Unknown]
  - Product quality issue [Unknown]
  - Weight decreased [Unknown]
  - Hyperthyroidism [Unknown]
  - Injection site pain [Unknown]
  - Osteoporosis [Unknown]
  - Nodule [Not Recovered/Not Resolved]
  - Nervousness [Unknown]
  - Blood glucose increased [Unknown]
  - Device leakage [Unknown]
  - Injection site pruritus [Not Recovered/Not Resolved]
  - Intentional product misuse [Unknown]
  - Device malfunction [Unknown]
  - Limb injury [Unknown]
  - Product packaging quantity issue [Unknown]
  - Ankle fracture [Unknown]
  - Hypothyroidism [Unknown]
  - Joint injury [Unknown]
  - Obesity [Unknown]
  - Bone disorder [Unknown]
  - Foot fracture [Unknown]
  - Emotional distress [Unknown]

NARRATIVE: CASE EVENT DATE: 2005
